FAERS Safety Report 8896230 (Version 1)
Quarter: 2012Q4

REPORT INFORMATION
  Report Type: 
  Country: US (occurrence: US)
  Receive Date: 20121107
  Receipt Date: 20121107
  Transmission Date: 20130627
  Serious: No
  Sender: FDA-Public Use
  Company Number: US-AMGEN-USASP2011056609

PATIENT
  Age: 48 Year
  Sex: Male
  Weight: 155 kg

DRUGS (7)
  1. ENBREL [Suspect]
     Indication: PRODUCT USED FOR UNKNOWN INDICATION
     Dosage: 50 mg, qwk
  2. CRESTOR [Concomitant]
  3. VERAPAMIL [Concomitant]
  4. ACIPHEX [Concomitant]
  5. ASPIRIN LOW [Concomitant]
  6. METHOTREXATE [Concomitant]
  7. ZOFRAN                             /00955301/ [Concomitant]
     Indication: PRODUCT USED FOR UNKNOWN INDICATION

REACTIONS (5)
  - Productive cough [Unknown]
  - Oropharyngeal pain [Unknown]
  - Hyperhidrosis [Unknown]
  - Chest pain [Unknown]
  - Nasopharyngitis [Unknown]
